FAERS Safety Report 7718274-8 (Version None)
Quarter: 2011Q3

REPORT INFORMATION
  Report Type: 
  Country: None (occurrence: None)
  Receive Date: 20110830
  Receipt Date: 20110822
  Transmission Date: 20111222
  Serious: Yes (Other)
  Sender: FDA-Public Use
  Company Number: GB-ROCHE-798428

PATIENT
  Sex: Male

DRUGS (3)
  1. COPEGUS [Interacting]
     Route: 065
  2. TEGRETOL [Interacting]
     Route: 065
  3. PEGASYS [Suspect]
     Route: 065

REACTIONS (2)
  - DRUG INTERACTION [None]
  - LIVER FUNCTION TEST ABNORMAL [None]
